FAERS Safety Report 5253870-1 (Version None)
Quarter: 2007Q1

REPORT INFORMATION
  Report Type: 
  Country: None (occurrence: None)
  Receive Date: 20070227
  Receipt Date: 20070219
  Transmission Date: 20070707
  Serious: Yes (Other)
  Sender: FDA-Public Use
  Company Number: 002#1#2007-00041

PATIENT
  Age: 61 Year
  Sex: Male
  Weight: 72.5755 kg

DRUGS (2)
  1. TRILYTE [Suspect]
     Indication: COLONOSCOPY
     Dosage: 41, 1ONCE, ORAL
     Route: 048
     Dates: start: 20070206, end: 20070206
  2. ASPIRIN [Concomitant]

REACTIONS (7)
  - DEAFNESS [None]
  - DIZZINESS [None]
  - INNER EAR DISORDER [None]
  - MIDDLE EAR EFFUSION [None]
  - SNEEZING [None]
  - TINNITUS [None]
  - VOMITING [None]
